FAERS Safety Report 14962363 (Version 1)
Quarter: 2018Q2

REPORT INFORMATION
  Report Type: Spontaneous
  Country: FR (occurrence: FR)
  Receive Date: 20180601
  Receipt Date: 20180601
  Transmission Date: 20180711
  Serious: Yes (Other)
  Sender: FDA-Public Use
  Company Number: FR-ALVOGEN-2018-ALVOGEN-096304

PATIENT
  Age: 4 Day
  Sex: Male

DRUGS (1)
  1. ATENOLOL. [Suspect]
     Active Substance: ATENOLOL
     Indication: MATERNAL EXPOSURE DURING BREAST FEEDING
     Route: 063
     Dates: start: 20180502, end: 20180504

REACTIONS (2)
  - Poor sucking reflex [Not Recovered/Not Resolved]
  - Hypotonia neonatal [Unknown]

NARRATIVE: CASE EVENT DATE: 201805
